FAERS Safety Report 4588568-6 (Version None)
Quarter: 2005Q1

REPORT INFORMATION
  Report Type: 
  Country: None (occurrence: None)
  Receive Date: 20050218
  Receipt Date: 20050211
  Transmission Date: 20050727
  Serious: Yes (Death, Congenital Anomaly)
  Sender: FDA-Public Use
  Company Number: 05-02-0222

PATIENT
  Sex: Male
  Weight: 1.1 kg

DRUGS (3)
  1. ALBUTEROL SULFATE [Suspect]
     Dosage: TRANSPLACENTAL
     Route: 064
  2. BECLOMETHASONE DIPROPIONATE [Suspect]
     Dosage: TRANSPLACENTAL
     Route: 064
  3. CANDESARTAN CILEXETIL [Suspect]
     Dosage: TRANSPLACENTAL
     Route: 064

REACTIONS (10)
  - ANURIA [None]
  - CONGENITAL FOOT MALFORMATION [None]
  - FOETAL HEART RATE ABNORMAL [None]
  - HYPOSPADIAS [None]
  - HYPOTENSION [None]
  - JOINT CONTRACTURE [None]
  - KIDNEY MALFORMATION [None]
  - MULTIPLE CONGENITAL ABNORMALITIES [None]
  - PULMONARY CONGESTION [None]
  - SKULL MALFORMATION [None]
